FAERS Safety Report 4919178-6 (Version None)
Quarter: 2006Q1

REPORT INFORMATION
  Report Type: 
  Country: None (occurrence: None)
  Receive Date: 20060113
  Receipt Date: 20051206
  Transmission Date: 20060701
  Serious: No
  Sender: FDA-Public Use
  Company Number: 2005SP004258

PATIENT
  Age: 75 Year
  Sex: Female
  Weight: 57.6068 kg

DRUGS (11)
  1. LUNESTA [Suspect]
     Dosage: 2 MG;HS;ORAL
     Route: 048
     Dates: start: 20051201, end: 20051205
  2. DARVOCET [Suspect]
     Dosage: ORAL
     Route: 048
     Dates: start: 20051204
  3. PREDNISOLONE [Suspect]
     Dosage: ORAL
     Route: 048
     Dates: start: 20050101
  4. FOSAMAX [Concomitant]
  5. DITROPAN /USA/ [Concomitant]
  6. LANOXIN [Concomitant]
  7. TOPRAL [Concomitant]
  8. ASPIRIN [Concomitant]
  9. CALCIUM GLUCONATE [Concomitant]
  10. MULTIVITAMIN [Concomitant]
  11. WELCHOL [Concomitant]

REACTIONS (3)
  - AMNESIA [None]
  - CONFUSIONAL STATE [None]
  - FEELING ABNORMAL [None]
